FAERS Safety Report 14249614 (Version 1)
Quarter: 2017Q4

REPORT INFORMATION
  Report Type: Spontaneous
  Country: US (occurrence: US)
  Receive Date: 20171205
  Receipt Date: 20171205
  Transmission Date: 20180321
  Serious: No
  Sender: FDA-Public Use
  Company Number: US-B.I. PHARMACEUTICALS,INC./RIDGEFIELD-2017-BI-063825

PATIENT
  Age: 46 Year
  Sex: Female

DRUGS (1)
  1. SPIRIVA RESPIMAT [Suspect]
     Active Substance: TIOTROPIUM BROMIDE
     Indication: CHRONIC OBSTRUCTIVE PULMONARY DISEASE
     Dosage: TWO INHALATION ONCE A DAY;  FORM STRENGTH: 1.25 MCG; FORMULATION: INHALATION SPRAY? ADMINISTRATION C
     Route: 055

REACTIONS (2)
  - Off label use [Unknown]
  - Chronic obstructive pulmonary disease [Unknown]

NARRATIVE: CASE EVENT DATE: 20171031
